FAERS Safety Report 11553342 (Version 1)
Quarter: 2015Q3

REPORT INFORMATION
  Report Type: Report from Study
  Country: US (occurrence: US)
  Receive Date: 20150925
  Receipt Date: 20150925
  Transmission Date: 20151125
  Serious: Yes (Other)
  Sender: FDA-Public Use
  Company Number: US-ROCHE-1434188

PATIENT
  Age: 38 Year
  Sex: Female
  Weight: 54.48 kg

DRUGS (8)
  1. XOLAIR [Suspect]
     Active Substance: OMALIZUMAB
     Route: 058
     Dates: start: 200911, end: 20150728
  2. PULMICORT INHALER [Concomitant]
     Indication: ASTHMA
     Dosage: 2 PUFFS 2 TIMES A DAY
     Route: 055
     Dates: start: 2005
  3. ENDOMETRIN [Concomitant]
     Active Substance: PROGESTERONE
     Route: 067
     Dates: start: 20150820
  4. XOLAIR [Suspect]
     Active Substance: OMALIZUMAB
     Indication: ASTHMA
     Route: 058
     Dates: start: 200909
  5. ALLERGY SHOTS [Concomitant]
     Active Substance: UNSPECIFIED INGREDIENT
     Indication: HYPERSENSITIVITY
     Route: 058
     Dates: start: 2000
  6. ASPIRIN. [Concomitant]
     Active Substance: ASPIRIN
     Route: 065
     Dates: start: 20150819, end: 20150914
  7. PROVENTIL [Concomitant]
     Active Substance: ALBUTEROL
     Route: 055
  8. PREDNISONE. [Concomitant]
     Active Substance: PREDNISONE

REACTIONS (5)
  - Dyspnoea [Recovering/Resolving]
  - Urticaria [Not Recovered/Not Resolved]
  - Maternal exposure during pregnancy [Unknown]
  - Abortion spontaneous [Unknown]
  - Asthma [Unknown]

NARRATIVE: CASE EVENT DATE: 2013
